FAERS Safety Report 6448893-0 (Version None)
Quarter: 2009Q4

REPORT INFORMATION
  Report Type: 
  Country: None (occurrence: None)
  Receive Date: 20091120
  Receipt Date: 20091111
  Transmission Date: 20100525
  Serious: Yes (Other)
  Sender: FDA-Public Use
  Company Number: AU-PFIZER INC-2009295823

PATIENT
  Age: 52 Year
  Sex: Male

DRUGS (1)
  1. CAVERJECT IMPULSE [Suspect]
     Dosage: 10 UG, UNK

REACTIONS (1)
  - PROSTATIC SPECIFIC ANTIGEN INCREASED [None]
